FAERS Safety Report 7939669-3 (Version None)
Quarter: 2011Q4

REPORT INFORMATION
  Report Type: 
  Country: None (occurrence: None)
  Receive Date: 20111125
  Receipt Date: 20111117
  Transmission Date: 20120403
  Serious: Yes (Other)
  Sender: FDA-Public Use
  Company Number: PHHY2010DK86524

PATIENT
  Sex: Male

DRUGS (12)
  1. SUTENT [Suspect]
     Indication: RENAL CANCER METASTATIC
     Dosage: 50 MG DAILY (4 WEEKS ON/2 WEEKS OFF)
     Route: 048
     Dates: start: 20100212, end: 20100621
  2. OXYCODONE HCL [Concomitant]
     Dosage: 5 MG, PRN
     Route: 065
  3. ENALAPRIL MALEATE [Concomitant]
     Indication: HYPERTENSION
     Dosage: 20 MG, QD
     Route: 065
  4. PAMOL [Concomitant]
     Dosage: 1 MG, QID
     Route: 065
  5. METHOTREXATE [Concomitant]
     Route: 065
  6. CENTYL [Concomitant]
     Indication: HYPERTENSION
     Dosage: 1 DF, DAILY
     Route: 065
  7. OXYCONTIN [Concomitant]
     Dosage: 10 MG, QID
     Route: 065
  8. ZOMETA [Suspect]
     Indication: METASTASES TO BONE
     Dosage: 4 MG, QW
     Route: 042
     Dates: start: 20100212, end: 20100510
  9. IBUPROFEN [Concomitant]
     Dosage: 600 MG, QID
     Route: 065
  10. SULFASALAZINE [Concomitant]
     Dosage: 1 G, BID
     Route: 065
  11. PREDNISOLONE [Concomitant]
     Dosage: 20 MG, QD
     Route: 065
  12. PANTOPRAZOLE [Concomitant]
     Dosage: 20 MG, UNK
     Route: 065

REACTIONS (4)
  - OSTEONECROSIS OF JAW [None]
  - ORAL PAIN [None]
  - EXPOSED BONE IN JAW [None]
  - ORAL DISCOMFORT [None]
